FAERS Safety Report 9767254 (Version 1)
Quarter: 2013Q4

REPORT INFORMATION
  Report Type: Spontaneous
  Country: CN (occurrence: None)
  Receive Date: 20131213
  Receipt Date: 20131213
  Transmission Date: 20140711
  Serious: Yes (Other)
  Sender: FDA-Public Use
  Company Number: FK201305226

PATIENT
  Age: 43 Year
  Sex: Male

DRUGS (3)
  1. DEFEROXAMINE MESYLATE [Suspect]
     Indication: MYELODYSPLASTIC SYNDROME
     Route: 042
  2. THALIDOMIDE [Concomitant]
  3. STANOZOLOL [Concomitant]

REACTIONS (1)
  - Interstitial lung disease [None]
